FAERS Safety Report 10082447 (Version 1)
Quarter: 2014Q2

REPORT INFORMATION
  Report Type: Spontaneous
  Country: IT (occurrence: IT)
  Receive Date: 20140416
  Receipt Date: 20140416
  Transmission Date: 20141212
  Serious: Yes (Hospitalization)
  Sender: FDA-Public Use
  Company Number: IT-TEVA-473882ISR

PATIENT
  Age: 83 Year
  Sex: Male

DRUGS (8)
  1. LEVOFLOXACIN [Suspect]
     Indication: ABSCESS
     Dosage: 500 MILLIGRAM DAILY;
     Route: 048
     Dates: start: 20140326, end: 20140327
  2. TAZOCIN [Concomitant]
     Indication: PRODUCT USED FOR UNKNOWN INDICATION
  3. LANOXIN [Concomitant]
     Indication: PRODUCT USED FOR UNKNOWN INDICATION
  4. LASIX [Concomitant]
     Indication: PRODUCT USED FOR UNKNOWN INDICATION
     Dosage: 25 MG
  5. URBASON [Concomitant]
     Indication: PRODUCT USED FOR UNKNOWN INDICATION
     Dosage: 40 MG
  6. CARDICOR [Concomitant]
     Indication: PRODUCT USED FOR UNKNOWN INDICATION
     Dosage: 1.25 MG
  7. ARIXTRA [Concomitant]
     Indication: PRODUCT USED FOR UNKNOWN INDICATION
     Dosage: 7.5 DF
  8. PANTOPRAZOLE SODIUM [Concomitant]
     Indication: PRODUCT USED FOR UNKNOWN INDICATION
     Dosage: 20 MG

REACTIONS (2)
  - Confusional state [Recovering/Resolving]
  - Delirium [Recovering/Resolving]
